FAERS Safety Report 7231762-6 (Version None)
Quarter: 2011Q1

REPORT INFORMATION
  Report Type: 
  Country: None (occurrence: None)
  Receive Date: 20110118
  Receipt Date: 20110111
  Transmission Date: 20110831
  Serious: Yes (Other)
  Sender: FDA-Public Use
  Company Number: US-BAXTER-2011BH001110

PATIENT

DRUGS (1)
  1. HEPARIN [Suspect]
     Indication: PROPHYLAXIS
     Route: 065

REACTIONS (4)
  - HAEMOGLOBIN DECREASED [None]
  - HAEMATOCRIT DECREASED [None]
  - HYPOTENSION [None]
  - RETROPERITONEAL HAEMATOMA [None]
